FAERS Safety Report 7816073-X (Version None)
Quarter: 2011Q4

REPORT INFORMATION
  Report Type: 
  Country: None (occurrence: None)
  Receive Date: 20111015
  Receipt Date: 20111005
  Transmission Date: 20120403
  Serious: Yes (Hospitalization, Other)
  Sender: FDA-Public Use
  Company Number: US-ASTRAZENECA-2011SE50606

PATIENT
  Age: 62 Year
  Sex: Female
  Weight: 66.7 kg

DRUGS (15)
  1. NEXIUM [Suspect]
     Indication: GASTROOESOPHAGEAL REFLUX DISEASE
     Route: 048
  2. NEXIUM [Suspect]
     Route: 048
  3. XANAX [Concomitant]
  4. HYDROMORPHONE HCL [Concomitant]
     Dosage: PRN
  5. PAXIL [Concomitant]
  6. SINGULAIR [Concomitant]
  7. LOPID [Concomitant]
  8. FENTANYL-100 [Concomitant]
  9. PHERGAN [Concomitant]
  10. OSCAL [Concomitant]
     Dosage: QD
  11. DUONEB [Concomitant]
  12. SOMA [Concomitant]
  13. NEXIUM [Suspect]
     Route: 048
  14. ASPIRIN [Concomitant]
  15. TESSALON [Concomitant]

REACTIONS (12)
  - OESOPHAGEAL PERFORATION [None]
  - ABDOMINAL PAIN [None]
  - RECTAL CANCER [None]
  - ILL-DEFINED DISORDER [None]
  - DYSPEPSIA [None]
  - INTESTINAL OBSTRUCTION [None]
  - BRONCHITIS [None]
  - DRUG INEFFECTIVE [None]
  - PANCREAS INFECTION [None]
  - GASTROOESOPHAGEAL REFLUX DISEASE [None]
  - DEMENTIA [None]
  - ASTHMA [None]
